FAERS Safety Report 9807018 (Version 2)
Quarter: 2014Q1

REPORT INFORMATION
  Report Type: Report from Study
  Country: US (occurrence: US)
  Receive Date: 20140110
  Receipt Date: 20140131
  Transmission Date: 20141002
  Serious: Yes (Death)
  Sender: FDA-Public Use
  Company Number: US-ROCHE-1331701

PATIENT
  Age: 64 Year
  Sex: Female

DRUGS (2)
  1. XELODA [Suspect]
     Indication: PANCREATIC CARCINOMA
     Dosage: TAKE IN AM, 7 DAYS ON, 7 DAYS OFF
     Route: 048
     Dates: start: 201302
  2. XELODA [Suspect]
     Dosage: TAKE IN PM, 7 DAYS ON, 7 DAYS OFF
     Route: 048
     Dates: start: 201302

REACTIONS (1)
  - Disease progression [Fatal]
